FAERS Safety Report 4320944-9 (Version None)
Quarter: 2004Q1

REPORT INFORMATION
  Report Type: 
  Country: None (occurrence: None)
  Receive Date: 20040318
  Receipt Date: 20040305
  Transmission Date: 20041129
  Serious: Yes (Hospitalization, Disabling, Other)
  Sender: FDA-Public Use
  Company Number: USA-2002-0002804

PATIENT
  Age: 42 Year
  Sex: Female
  Weight: 62.6 kg

DRUGS (20)
  1. OXYCONTIN [Suspect]
     Indication: PAIN
     Dosage: SEE IMAGE
     Route: 048
     Dates: start: 19970122
  2. XANAX [Suspect]
  3. PROVIGIL [Suspect]
  4. HYDROCHLOROTHIAZIDE [Concomitant]
  5. CARDIZEM [Concomitant]
  6. DYAZIDE [Concomitant]
  7. VIOXX [Concomitant]
  8. VIAGRA [Concomitant]
  9. DURAGESIC [Concomitant]
  10. EFFEXOR [Concomitant]
  11. SENOKOT [Concomitant]
  12. DULCOLAX [Concomitant]
  13. ZOLOFT [Concomitant]
  14. PRILOSEC [Concomitant]
  15. TYLENOL (CAPLET) [Concomitant]
  16. DIAZEPAM [Concomitant]
  17. PAMELOR [Concomitant]
  18. FIORICET [Concomitant]
  19. PAXIL [Concomitant]
  20. PERCOCET [Concomitant]

REACTIONS (67)
  - ABDOMINAL PAIN UPPER [None]
  - AGITATION [None]
  - AMNESIA [None]
  - ANXIETY [None]
  - BENIGN BREAST NEOPLASM [None]
  - BREAST PAIN [None]
  - BRONCHITIS [None]
  - CHEST PAIN [None]
  - CONSTIPATION [None]
  - COSTOCHONDRITIS [None]
  - CYANOSIS [None]
  - DEPRESSION [None]
  - DIZZINESS [None]
  - DRUG DEPENDENCE [None]
  - DRUG INEFFECTIVE [None]
  - DRUG TOXICITY [None]
  - DRUG WITHDRAWAL SYNDROME [None]
  - DYSPNOEA [None]
  - EAR PAIN [None]
  - EMOTIONAL DISTRESS [None]
  - EXOSTOSIS [None]
  - EYE IRRITATION [None]
  - FATIGUE [None]
  - FIBROMYALGIA [None]
  - GASTROENTERITIS VIRAL [None]
  - HEADACHE [None]
  - HEART SOUNDS ABNORMAL [None]
  - HOT FLUSH [None]
  - HYPERHIDROSIS [None]
  - HYPOAESTHESIA [None]
  - INSOMNIA [None]
  - INTERVERTEBRAL DISC PROTRUSION [None]
  - KYPHOSIS [None]
  - LACRIMATION INCREASED [None]
  - MOUTH ULCERATION [None]
  - MUSCLE CRAMP [None]
  - MUSCLE SPASMS [None]
  - MUSCULOSKELETAL STIFFNESS [None]
  - MYALGIA [None]
  - NAUSEA [None]
  - NECK DEFORMITY [None]
  - NECK PAIN [None]
  - OEDEMA PERIPHERAL [None]
  - OFF LABEL USE [None]
  - ORAL SOFT TISSUE DISORDER [None]
  - OVERDOSE [None]
  - PAIN [None]
  - PAIN IN EXTREMITY [None]
  - PILOERECTION [None]
  - PNEUMONITIS [None]
  - REFLEX SYMPATHETIC DYSTROPHY [None]
  - RESPIRATORY DISTRESS [None]
  - RESTLESSNESS [None]
  - RHINORRHOEA [None]
  - SOCIAL AVOIDANT BEHAVIOUR [None]
  - SOMNOLENCE [None]
  - SPINAL CORD COMPRESSION [None]
  - SPINAL FUSION ACQUIRED [None]
  - SPONDYLOSIS [None]
  - TOOTH ABSCESS [None]
  - TOOTH DISORDER [None]
  - TOOTH LOSS [None]
  - TREATMENT NONCOMPLIANCE [None]
  - TREMOR [None]
  - URINARY RETENTION [None]
  - WEIGHT DECREASED [None]
  - WEIGHT INCREASED [None]
